FAERS Safety Report 10064654 (Version 1)
Quarter: 2014Q2

REPORT INFORMATION
  Report Type: Spontaneous
  Country: US (occurrence: None)
  Receive Date: 20140407
  Receipt Date: 20140407
  Transmission Date: 20141212
  Serious: Yes (Disabling)
  Sender: FDA-Public Use
  Company Number: None

PATIENT
  Age: 69 Year
  Sex: Male
  Weight: 90.72 kg

DRUGS (1)
  1. NITROSTAT [Suspect]
     Indication: CARDIAC DISORDER
     Route: 060

REACTIONS (3)
  - Product packaging issue [None]
  - Incorrect product storage [None]
  - Product quality issue [None]
